FAERS Safety Report 7902050-7 (Version None)
Quarter: 2011Q4

REPORT INFORMATION
  Report Type: 
  Country: None (occurrence: None)
  Receive Date: 20111108
  Receipt Date: 20110830
  Transmission Date: 20120403
  Serious: Yes (Hospitalization)
  Sender: FDA-Public Use
  Company Number: JP-GLAXOSMITHKLINE-B0744067A

PATIENT
  Sex: Female

DRUGS (9)
  1. LAMICTAL [Suspect]
     Indication: BIPOLAR I DISORDER
     Dosage: 25MG TWICE PER DAY
     Route: 048
     Dates: start: 20110816, end: 20110828
  2. PROMAZINE HYDROCHLORIDE [Suspect]
     Indication: BIPOLAR I DISORDER
     Dosage: 100MG PER DAY
     Route: 048
     Dates: start: 20010101
  3. NITRAZEPAM [Suspect]
     Indication: BIPOLAR I DISORDER
     Dosage: 10MG PER DAY
     Route: 048
     Dates: start: 20010101
  4. HIRNAMIN [Suspect]
     Indication: BIPOLAR I DISORDER
     Dosage: 10MG PER DAY
     Route: 048
     Dates: start: 20010101
  5. ZOLOFT [Suspect]
     Indication: BIPOLAR I DISORDER
     Dosage: 100MG PER DAY
     Route: 048
     Dates: start: 20010101
  6. ALPRAZOLAM [Suspect]
     Indication: BIPOLAR I DISORDER
     Dosage: 1.6MG PER DAY
     Route: 048
     Dates: start: 20010101
  7. LAC B [Suspect]
     Indication: CONSTIPATION
     Dosage: 3G PER DAY
     Route: 048
     Dates: start: 20010101
  8. DEPAKENE [Suspect]
     Indication: BIPOLAR I DISORDER
     Dosage: 800MG PER DAY
     Route: 048
     Dates: start: 20010101
  9. CLONAZEPAM [Suspect]
     Indication: BIPOLAR I DISORDER
     Dosage: .5MG PER DAY
     Route: 048
     Dates: start: 20010101

REACTIONS (4)
  - PYREXIA [None]
  - OROPHARYNGEAL PAIN [None]
  - RASH [None]
  - TOXIC SKIN ERUPTION [None]
